FAERS Safety Report 14555305 (Version 1)
Quarter: 2018Q1

REPORT INFORMATION
  Report Type: Spontaneous
  Country: US (occurrence: US)
  Receive Date: 20180220
  Receipt Date: 20180220
  Transmission Date: 20180509
  Serious: No
  Sender: FDA-Public Use
  Company Number: US-GLAXOSMITHKLINE-US2018027634

PATIENT
  Sex: Female

DRUGS (5)
  1. BENLYSTA [Suspect]
     Active Substance: BELIMUMAB
     Indication: SYSTEMIC LUPUS ERYTHEMATOSUS
     Route: 042
  2. PLAQUENIL [Concomitant]
     Active Substance: HYDROXYCHLOROQUINE SULFATE
  3. ACYCLOVIR. [Concomitant]
     Active Substance: ACYCLOVIR
  4. METHOTREXATE. [Concomitant]
     Active Substance: METHOTREXATE
  5. BENLYSTA [Suspect]
     Active Substance: BELIMUMAB
     Indication: SYSTEMIC LUPUS ERYTHEMATOSUS
     Dosage: 200 MG, CYC
     Route: 058

REACTIONS (9)
  - Injection site bruising [Unknown]
  - Drug ineffective [Unknown]
  - Asthenia [Unknown]
  - Injection site pain [Unknown]
  - Skin exfoliation [Unknown]
  - Pain [Unknown]
  - Skin disorder [Unknown]
  - Injection site pruritus [Unknown]
  - Therapeutic response shortened [Unknown]
